FAERS Safety Report 7032182-X (Version None)
Quarter: 2010Q4

REPORT INFORMATION
  Report Type: 
  Country: None (occurrence: None)
  Receive Date: 20101007
  Receipt Date: 20100928
  Transmission Date: 20110411
  Serious: Yes (Hospitalization)
  Sender: FDA-Public Use
  Company Number: FR-NOVOPROD-315916

PATIENT
  Age: 71 Year
  Sex: Female

DRUGS (4)
  1. VICTOZA [Suspect]
     Indication: TYPE 2 DIABETES MELLITUS
     Dates: start: 20100803, end: 20100920
  2. AMLODIPINE [Concomitant]
     Dates: start: 20100803, end: 20100920
  3. INDAPAMIDE [Concomitant]
     Dates: start: 20100803, end: 20100920
  4. TAHOR [Concomitant]
     Dates: start: 20100803, end: 20100920

REACTIONS (4)
  - DECREASED APPETITE [None]
  - DEHYDRATION [None]
  - FLUID INTAKE REDUCED [None]
  - RENAL FAILURE ACUTE [None]
